FAERS Safety Report 17683345 (Version 1)
Quarter: 2020Q2

REPORT INFORMATION
  Report Type: Spontaneous
  Country: US (occurrence: US)
  Receive Date: 20200420
  Receipt Date: 20200420
  Transmission Date: 20200714
  Serious: No
  Sender: FDA-Public Use
  Company Number: US-UNICHEM PHARMACEUTICALS (USA) INC-UCM202003-000342

PATIENT
  Sex: Female
  Weight: 55.79 kg

DRUGS (6)
  1. TOPIRAMATE. [Suspect]
     Active Substance: TOPIRAMATE
     Dosage: TAKING HALF TABLET OF 100 MG ONCE A DAY
     Route: 048
  2. MAXALT [Concomitant]
     Active Substance: RIZATRIPTAN BENZOATE
     Indication: MIGRAINE
     Dosage: AS NEEDED
  3. PREDNISONE. [Concomitant]
     Active Substance: PREDNISONE
     Indication: MIGRAINE
  4. TYLENOL [Concomitant]
     Active Substance: ACETAMINOPHEN
     Indication: MIGRAINE
  5. XANAX [Concomitant]
     Active Substance: ALPRAZOLAM
     Indication: MIGRAINE
     Dosage: AS NEEDED WHEN MAXALT DOES NOT WORK
  6. TOPIRAMATE. [Suspect]
     Active Substance: TOPIRAMATE
     Indication: MIGRAINE PROPHYLAXIS

REACTIONS (1)
  - Wrong technique in product usage process [Unknown]
